FAERS Safety Report 6324174-0 (Version None)
Quarter: 2009Q3

REPORT INFORMATION
  Report Type: 
  Country: None (occurrence: None)
  Receive Date: 20090824
  Receipt Date: 20090526
  Transmission Date: 20100115
  Serious: No
  Sender: FDA-Public Use
  Company Number: US-ABBOTT-09P-163-0576202-00

PATIENT
  Sex: Female
  Weight: 83.99 kg

DRUGS (1)
  1. NIASPAN [Suspect]
     Indication: MYOCARDIAL INFARCTION
     Dates: start: 20090515

REACTIONS (1)
  - PRURITUS [None]
